FAERS Safety Report 4278504-4 (Version None)
Quarter: 2004Q1

REPORT INFORMATION
  Report Type: 
  Country: None (occurrence: None)
  Receive Date: 20040123
  Receipt Date: 20040114
  Transmission Date: 20041129
  Serious: Yes (Death)
  Sender: FDA-Public Use
  Company Number: WAES 0401BEL00005

PATIENT
  Age: 61 Year
  Weight: 75 kg

DRUGS (5)
  1. CANCIDAS [Suspect]
     Indication: FUNGAL INFECTION
     Route: 042
     Dates: start: 20030815, end: 20030918
  2. FLUCONAZOLE [Concomitant]
     Indication: PROPHYLAXIS
     Route: 041
     Dates: start: 20030802, end: 20030814
  3. SOLU-CORTEF [Concomitant]
     Route: 042
  4. SPORANOX [Concomitant]
     Route: 042
     Dates: start: 20030828, end: 20030910
  5. VORICONAZOLE [Concomitant]
     Route: 041
     Dates: start: 20030910, end: 20030922

REACTIONS (3)
  - DEATH [None]
  - DRUG INEFFECTIVE [None]
  - GEOTRICHUM INFECTION [None]
